FAERS Safety Report 4396583-0 (Version None)
Quarter: 2004Q3

REPORT INFORMATION
  Report Type: 
  Country: None (occurrence: None)
  Receive Date: 20040712
  Receipt Date: 20040628
  Transmission Date: 20050211
  Serious: Yes (Hospitalization)
  Sender: FDA-Public Use
  Company Number: 2004044339

PATIENT
  Age: 33 Month

DRUGS (1)
  1. NORVASC [Suspect]
     Indication: ILL-DEFINED DISORDER
     Dosage: 5 MG (5 MG, ONCE, ORAL)
     Route: 048
     Dates: start: 20040628, end: 20040628

REACTIONS (2)
  - ACCIDENTAL EXPOSURE [None]
  - NO ADVERSE DRUG EFFECT [None]
